FAERS Safety Report 5887395-7 (Version None)
Quarter: 2008Q3

REPORT INFORMATION
  Report Type: 
  Country: None (occurrence: None)
  Receive Date: 20080916
  Receipt Date: 20080916
  Transmission Date: 20090109
  Serious: Yes (Other)
  Sender: FDA-Public Use
  Company Number: None

PATIENT
  Sex: Male
  Weight: 68.0396 kg

DRUGS (1)
  1. CAPZASIN (CAPSAICIN 0.15%) [Suspect]
     Indication: ARTHRITIS
     Dosage: 4 TIMES DAILY
     Dates: start: 20080801

REACTIONS (1)
  - BURNING SENSATION [None]
